FAERS Safety Report 6100064-3 (Version None)
Quarter: 2009Q1

REPORT INFORMATION
  Report Type: 
  Country: None (occurrence: None)
  Receive Date: 20090303
  Receipt Date: 20090227
  Transmission Date: 20090719
  Serious: Yes (Hospitalization)
  Sender: FDA-Public Use
  Company Number: B0562003A

PATIENT
  Age: 93 Year
  Sex: Female

DRUGS (1)
  1. VALTREX [Suspect]
     Indication: DRUG USE FOR UNKNOWN INDICATION
     Dosage: 1000MG FIVE TIMES PER DAY
     Route: 048
     Dates: start: 20090217, end: 20090223

REACTIONS (2)
  - ANOREXIA [None]
  - DYSARTHRIA [None]
